FAERS Safety Report 19237479 (Version 1)
Quarter: 2021Q2

REPORT INFORMATION
  Report Type: Spontaneous
  Country: US (occurrence: US)
  Receive Date: 20210510
  Receipt Date: 20210510
  Transmission Date: 20210717
  Serious: No
  Sender: FDA-Public Use
  Company Number: None

PATIENT
  Age: 38 Year
  Sex: Female

DRUGS (1)
  1. MAGNESIUM SULFATE 20GM/500ML IV [Suspect]
     Active Substance: MAGNESIUM SULFATE
     Route: 041

REACTIONS (2)
  - Toxicity to various agents [None]
  - Blood magnesium increased [None]

NARRATIVE: CASE EVENT DATE: 20210507
